FAERS Safety Report 9381010 (Version 10)
Quarter: 2014Q4

REPORT INFORMATION
  Report Type: Spontaneous
  Country: CA (occurrence: CA)
  Receive Date: 20130703
  Receipt Date: 20141114
  Transmission Date: 20150529
  Serious: Yes (Hospitalization)
  Sender: FDA-Public Use
  Company Number: CA-ROCHE-1243921

PATIENT
  Age: 61 Year
  Sex: Male

DRUGS (8)
  1. PREDNISONE. [Concomitant]
     Active Substance: PREDNISONE
  2. THEOPHYLLINE [Concomitant]
     Active Substance: THEOPHYLLINE ANHYDROUS
  3. SYMBICORT [Concomitant]
     Active Substance: BUDESONIDE\FORMOTEROL FUMARATE DIHYDRATE
  4. SINGULAIR [Concomitant]
     Active Substance: MONTELUKAST SODIUM
  5. XOLAIR [Suspect]
     Active Substance: OMALIZUMAB
     Indication: ASTHMA
     Route: 058
     Dates: start: 20120725
  6. SPIRIVA [Concomitant]
     Active Substance: TIOTROPIUM BROMIDE MONOHYDRATE
  7. SALBUTAMOL [Concomitant]
     Active Substance: ALBUTEROL
  8. ATROVENT [Concomitant]
     Active Substance: IPRATROPIUM BROMIDE

REACTIONS (16)
  - Hand deformity [Unknown]
  - Oropharyngeal pain [Unknown]
  - Respiratory distress [Recovering/Resolving]
  - Foaming at mouth [Unknown]
  - Dizziness [Unknown]
  - Pyrexia [Unknown]
  - Dyspnoea [Unknown]
  - Spasmodic dysphonia [Recovered/Resolved]
  - Asthma [Unknown]
  - Laryngospasm [Unknown]
  - Rhinorrhoea [Unknown]
  - Oesophageal spasm [Unknown]
  - Fatigue [Unknown]
  - Tracheal disorder [Unknown]
  - Malaise [Unknown]
  - Cough [Unknown]

NARRATIVE: CASE EVENT DATE: 20120725
